FAERS Safety Report 5526866-X (Version None)
Quarter: 2007Q4

REPORT INFORMATION
  Report Type: 
  Country: None (occurrence: None)
  Receive Date: 20071127
  Receipt Date: 20071121
  Transmission Date: 20080405
  Serious: Yes (Hospitalization, Other)
  Sender: FDA-Public Use
  Company Number: PHBS2007JP19578

PATIENT
  Age: 52 Year
  Sex: Male

DRUGS (5)
  1. VOLTAREN [Suspect]
     Indication: SPINAL CORD INJURY CERVICAL
     Dosage: 50 MG, UNK
     Route: 054
     Dates: start: 20030312, end: 20050314
  2. LORCAM [Suspect]
     Dosage: 4 MG/DAY
     Route: 048
     Dates: start: 20030312, end: 20050314
  3. TERNELIN [Concomitant]
     Dosage: 1 MG, UNK
     Route: 048
     Dates: start: 20030312, end: 20050523
  4. CYANOCOBALAMIN [Concomitant]
     Dosage: 500 MG, UNK
     Route: 048
     Dates: start: 20030312, end: 20050523
  5. SOLON [Concomitant]
     Dosage: 1 G, UNK
     Dates: start: 20030312, end: 20050523

REACTIONS (7)
  - BLOOD ALBUMIN DECREASED [None]
  - BLOOD CREATININE DECREASED [None]
  - NEPHROTIC SYNDROME [None]
  - OEDEMA PERIPHERAL [None]
  - PROTEIN TOTAL DECREASED [None]
  - PROTEIN URINE PRESENT [None]
  - RENAL IMPAIRMENT [None]
